FAERS Safety Report 4818541-1 (Version None)
Quarter: 2005Q4

REPORT INFORMATION
  Report Type: 
  Country: None (occurrence: None)
  Receive Date: 20051031
  Receipt Date: 20051018
  Transmission Date: 20060501
  Serious: Yes (Other)
  Sender: FDA-Public Use
  Company Number: 2005116181

PATIENT
  Age: 77 Year
  Sex: Female
  Weight: 58.514 kg

DRUGS (10)
  1. LIPITOR [Suspect]
     Indication: BLOOD CHOLESTEROL INCREASED
     Dosage: 15 MG (15 MG, 1 IN 1 D), ORAL
     Route: 048
     Dates: start: 19980101, end: 20050811
  2. LIPITOR [Suspect]
     Indication: CAROTID ARTERY STENOSIS
     Dosage: 15 MG (15 MG, 1 IN 1 D), ORAL
     Route: 048
     Dates: start: 19980101, end: 20050811
  3. LIPITOR [Suspect]
     Indication: CORONARY ARTERY DISEASE
     Dosage: 15 MG (15 MG, 1 IN 1 D), ORAL
     Route: 048
     Dates: start: 19980101, end: 20050811
  4. PLAVIX [Concomitant]
  5. SYNTHROID [Concomitant]
  6. BENICAR [Concomitant]
  7. TENORMIN [Concomitant]
  8. NORVASC [Concomitant]
  9. DYAZIDE [Concomitant]
  10. THYROID TAB [Concomitant]

REACTIONS (13)
  - ABASIA [None]
  - BURNING SENSATION [None]
  - FEELING ABNORMAL [None]
  - LUMBAR RADICULOPATHY [None]
  - MENTAL DISORDER [None]
  - MIDDLE INSOMNIA [None]
  - MUSCLE SPASMS [None]
  - NAUSEA [None]
  - NEUROPATHY PERIPHERAL [None]
  - PAIN [None]
  - RENAL VESSEL DISORDER [None]
  - THINKING ABNORMAL [None]
  - TREATMENT NONCOMPLIANCE [None]
